FAERS Safety Report 9183307 (Version 1)
Quarter: 2013Q1

REPORT INFORMATION
  Report Type: Report from Study
  Country: LB (occurrence: LB)
  Receive Date: 20130322
  Receipt Date: 20130322
  Transmission Date: 20140127
  Serious: Yes (Hospitalization)
  Sender: FDA-Public Use
  Company Number: LB-SANOFI-AVENTIS-2013SA027308

PATIENT
  Age: 68 Year
  Sex: Female

DRUGS (10)
  1. LANTUS SOLOSTAR [Suspect]
     Indication: DIABETES MELLITUS
     Dosage: DOSE:15 UNIT(S)
     Route: 058
     Dates: start: 201301
  2. SOLOSTAR [Suspect]
     Indication: DEVICE THERAPY
  3. JANUVIA [Suspect]
     Indication: DIABETES MELLITUS
     Route: 048
  4. CONCOR [Suspect]
     Indication: PRODUCT USED FOR UNKNOWN INDICATION
     Route: 048
  5. CYNT [Suspect]
     Indication: PRODUCT USED FOR UNKNOWN INDICATION
     Route: 048
  6. AMLOR [Concomitant]
     Route: 048
  7. APROVEL [Concomitant]
     Route: 048
  8. BETASERC [Concomitant]
     Route: 048
  9. LIPANTHYL [Concomitant]
     Route: 048
  10. BURINEX [Concomitant]
     Route: 048

REACTIONS (1)
  - General physical health deterioration [Recovered/Resolved]
